FAERS Safety Report 9955475 (Version 1)
Quarter: 2014Q1

REPORT INFORMATION
  Report Type: Report from Study
  Country: US (occurrence: US)
  Receive Date: 20140304
  Receipt Date: 20140304
  Transmission Date: 20141002
  Serious: No
  Sender: FDA-Public Use
  Company Number: US-ABBVIE-13P-163-1089266-00

PATIENT
  Age: 56 Year
  Sex: Male

DRUGS (6)
  1. HUMIRA [Suspect]
     Indication: RHEUMATOID ARTHRITIS
     Dates: start: 20121224
  2. PREDNISONE [Concomitant]
     Indication: ARTHRITIS
     Dosage: 5 MG DAILY
     Route: 048
  3. METHOTREXATE [Concomitant]
     Indication: ARTHRITIS
     Route: 048
  4. IBUPROFEN [Concomitant]
     Indication: PAIN
     Route: 048
  5. UNKNOWN STOMACH MEDICATION [Concomitant]
     Indication: GASTROOESOPHAGEAL REFLUX DISEASE
     Route: 048
  6. FOLIC ACID [Concomitant]
     Indication: ARTHRALGIA
     Dosage: 1 MG DAILY

REACTIONS (1)
  - Injection site pain [Recovered/Resolved]
